FAERS Safety Report 12724928 (Version 1)
Quarter: 2016Q3

REPORT INFORMATION
  Report Type: Report from Study
  Country: US (occurrence: US)
  Receive Date: 20160908
  Receipt Date: 20160908
  Transmission Date: 20161109
  Serious: Yes (Hospitalization)
  Sender: FDA-Public Use
  Company Number: US-MALLINCKRODT-T201603977

PATIENT
  Age: 49 Year
  Sex: Male

DRUGS (16)
  1. NIFEDIPINE. [Concomitant]
     Active Substance: NIFEDIPINE
  2. PREDNISONE. [Concomitant]
     Active Substance: PREDNISONE
  3. ADVAIR HFA [Concomitant]
     Active Substance: FLUTICASONE PROPIONATE\SALMETEROL XINAFOATE
  4. HYDROCODONE [Concomitant]
     Active Substance: HYDROCODONE
  5. CARVEDILOL. [Concomitant]
     Active Substance: CARVEDILOL
  6. COLCRYS [Concomitant]
     Active Substance: COLCHICINE
  7. ATORVASTATIN [Concomitant]
     Active Substance: ATORVASTATIN
  8. REPOSITORY CORTICOTROPIN INJECTION [Suspect]
     Active Substance: CORTICOTROPIN
     Indication: SARCOIDOSIS
     Dosage: 80 UNITS TWICE WKLY (TUE/FRI)
     Route: 030
     Dates: start: 201411, end: 20160715
  9. CLONIDINE. [Concomitant]
     Active Substance: CLONIDINE
  10. BABY ASPIRIN [Concomitant]
     Active Substance: ASPIRIN
  11. CYCLOBENZAPRINE [Concomitant]
     Active Substance: CYCLOBENZAPRINE
  12. GABAPENTIN. [Concomitant]
     Active Substance: GABAPENTIN
  13. LISINOPRIL. [Concomitant]
     Active Substance: LISINOPRIL
  14. FUROSEMIDE. [Concomitant]
     Active Substance: FUROSEMIDE
  15. XANAX [Concomitant]
     Active Substance: ALPRAZOLAM
  16. HYDRALAZINE [Concomitant]
     Active Substance: HYDRALAZINE HYDROCHLORIDE

REACTIONS (3)
  - Therapy cessation [Not Recovered/Not Resolved]
  - Sarcoidosis [Unknown]
  - Cardiac failure congestive [Not Recovered/Not Resolved]

NARRATIVE: CASE EVENT DATE: 20160715
